FAERS Safety Report 8772659 (Version 2)
Quarter: 2012Q4

REPORT INFORMATION
  Report Type: 
  Country: US (occurrence: US)
  Receive Date: 20120905
  Receipt Date: 20120918
  Transmission Date: 20130627
  Serious: Yes (Other)
  Sender: FDA-Public Use
  Company Number: US-PFIZER INC-2012215217

PATIENT
  Age: 40 Year
  Sex: Female
  Weight: 77.1 kg

DRUGS (2)
  1. LYRICA [Suspect]
     Indication: PROCEDURAL PAIN
     Dosage: 75 mg, 4x/day
     Route: 048
     Dates: start: 20120803, end: 2012
  2. TYLENOL [Concomitant]
     Indication: PAIN IN EXTREMITY
     Dosage: UNK

REACTIONS (3)
  - Cystitis [Not Recovered/Not Resolved]
  - Urinary incontinence [Recovered/Resolved]
  - Bladder pain [Not Recovered/Not Resolved]
